FAERS Safety Report 11961655 (Version 2)
Quarter: 2016Q1

REPORT INFORMATION
  Report Type: Report from Study
  Country: US (occurrence: US)
  Receive Date: 20160126
  Receipt Date: 20160202
  Transmission Date: 20160526
  Serious: No
  Sender: FDA-Public Use
  Company Number: US-ABBVIE-15K-163-1359233-00

PATIENT
  Age: 39 Year
  Sex: Female

DRUGS (2)
  1. HUMIRA [Suspect]
     Active Substance: ADALIMUMAB
     Indication: PSORIASIS
     Route: 058
     Dates: start: 20141218, end: 20150306
  2. METHOTREXATE [Concomitant]
     Active Substance: METHOTREXATE
     Indication: PSORIASIS

REACTIONS (1)
  - Wound [Not Recovered/Not Resolved]

NARRATIVE: CASE EVENT DATE: 20150306
